FAERS Safety Report 16237646 (Version 1)
Quarter: 2019Q2

REPORT INFORMATION
  Report Type: Spontaneous
  Country: US (occurrence: US)
  Receive Date: 20190424
  Receipt Date: 20190424
  Transmission Date: 20190711
  Serious: Yes (Other)
  Sender: FDA-Public Use
  Company Number: None

PATIENT
  Age: 69 Year
  Sex: Male
  Weight: 76.5 kg

DRUGS (18)
  1. ESCALITOPRAM [Concomitant]
  2. PREDNISONE. [Concomitant]
     Active Substance: PREDNISONE
  3. AMLODIPINE [Concomitant]
     Active Substance: AMLODIPINE BESYLATE
  4. ASPIRIN. [Concomitant]
     Active Substance: ASPIRIN
  5. MAGNESIUM OXIDE. [Concomitant]
     Active Substance: MAGNESIUM OXIDE
  6. PRALUENT [Suspect]
     Active Substance: ALIROCUMAB
     Indication: BLOOD CHOLESTEROL INCREASED
     Dosage: ?          QUANTITY:1 INJECTION(S);OTHER FREQUENCY:1 X 2 WEEKS;?
     Route: 030
  7. GLYBURIDE. [Concomitant]
     Active Substance: GLYBURIDE
  8. JANUVIA [Concomitant]
     Active Substance: SITAGLIPTIN PHOSPHATE
  9. LUMIGAN [Concomitant]
     Active Substance: BIMATOPROST
  10. PANTOPRAZOLE [Concomitant]
     Active Substance: PANTOPRAZOLE
  11. BACTRIM [Concomitant]
     Active Substance: SULFAMETHOXAZOLE\TRIMETHOPRIM
  12. TACROLIMUS. [Concomitant]
     Active Substance: TACROLIMUS
  13. FOLIC ACID. [Concomitant]
     Active Substance: FOLIC ACID
  14. CALCIUM [Concomitant]
     Active Substance: CALCIUM
  15. MULTIVITAMIN [Concomitant]
     Active Substance: VITAMINS
  16. CYCLOBENZAPRINE. [Concomitant]
     Active Substance: CYCLOBENZAPRINE
  17. NICOTINAMIDE [Concomitant]
     Active Substance: NIACINAMIDE
  18. ZOLPIDEM TARTRATE. [Concomitant]
     Active Substance: ZOLPIDEM TARTRATE

REACTIONS (4)
  - Arthralgia [None]
  - Gait disturbance [None]
  - Myalgia [None]
  - Muscle tightness [None]

NARRATIVE: CASE EVENT DATE: 20190416
